FAERS Safety Report 4534723-0 (Version None)
Quarter: 2004Q4

REPORT INFORMATION
  Report Type: 
  Country: None (occurrence: None)
  Receive Date: 20041222
  Receipt Date: 20031211
  Transmission Date: 20050328
  Serious: No
  Sender: FDA-Public Use
  Company Number: US-BRISTOL-MYERS SQUIBB COMPANY-12457073

PATIENT
  Age: 71 Year
  Sex: Female
  Weight: 54 kg

DRUGS (6)
  1. PRAVACHOL [Suspect]
     Indication: BLOOD CHOLESTEROL INCREASED
     Route: 048
     Dates: start: 20030901
  2. NORVASC [Concomitant]
  3. TOPROL-XL [Concomitant]
  4. FOSAMAX [Concomitant]
  5. COSOPT [Concomitant]
  6. ALPHAGAN [Concomitant]

REACTIONS (1)
  - HAIR GROWTH ABNORMAL [None]
